FAERS Safety Report 7716100-4 (Version None)
Quarter: 2011Q3

REPORT INFORMATION
  Report Type: 
  Country: None (occurrence: None)
  Receive Date: 20110829
  Receipt Date: 20110822
  Transmission Date: 20111222
  Serious: Yes (Death, Hospitalization)
  Sender: FDA-Public Use
  Company Number: US-GLAXOSMITHKLINE-A0941868A

PATIENT
  Age: 72 Year
  Sex: Female

DRUGS (14)
  1. PANTOPRAZOLE [Concomitant]
  2. UNSPECIFIED MEDICATION [Concomitant]
  3. METOPROLOL TARTRATE [Concomitant]
  4. GABAPENTIN [Concomitant]
  5. ADVAIR DISKUS 100/50 [Suspect]
     Indication: PULMONARY HYPERTENSION
     Dosage: 1PUFF TWICE PER DAY
     Route: 055
     Dates: start: 20081101, end: 20110801
  6. CALCIUM CARBONATE [Concomitant]
  7. VITAMIN D [Concomitant]
  8. REVATIO [Concomitant]
  9. ALBUTEROL [Concomitant]
  10. PERCOCET [Concomitant]
  11. FUROSEMIDE [Concomitant]
  12. SULFATRIM [Concomitant]
  13. STOOL SOFTENER [Concomitant]
  14. PREDNISONE [Concomitant]

REACTIONS (3)
  - CONTUSION [None]
  - FALL [None]
  - DEATH [None]
